FAERS Safety Report 7213107-0 (Version None)
Quarter: 2010Q4

REPORT INFORMATION
  Report Type: 
  Country: None (occurrence: None)
  Receive Date: 20101229
  Receipt Date: 20101213
  Transmission Date: 20110411
  Serious: Yes (Hospitalization, Other)
  Sender: FDA-Public Use
  Company Number: SI-ACCORD-007369

PATIENT
  Sex: Female
  Weight: 1 kg

DRUGS (3)
  1. IRBESARTAN [Suspect]
     Dosage: 300.00-MG- TRANSPLACENTAL
     Route: 064
  2. METHYLDOPA [Suspect]
     Dosage: 500.00-MG- TRANSPLACENTAL
     Route: 064
  3. LYSINE ACETYLSALICYLIC (LYSINE ACETYLSALICYLIC) [Suspect]
     Indication: PRODUCT USED FOR UNKNOWN INDICATION
     Dosage: 100.00-MG TRANSPLACENTAL
     Route: 064

REACTIONS (8)
  - CAESAREAN SECTION [None]
  - CEREBRAL CYST [None]
  - CEREBRAL HAEMORRHAGE [None]
  - INFANTILE APNOEIC ATTACK [None]
  - MATERNAL DRUGS AFFECTING FOETUS [None]
  - NEONATAL RESPIRATORY DISTRESS SYNDROME [None]
  - PNEUMOTHORAX [None]
  - PREMATURE BABY [None]
